FAERS Safety Report 8923056 (Version 3)
Quarter: 2013Q1

REPORT INFORMATION
  Report Type: Report from Study
  Country: BR (occurrence: BR)
  Receive Date: 20121123
  Receipt Date: 20130204
  Transmission Date: 20140127
  Serious: Yes (Other)
  Sender: FDA-Public Use
  Company Number: BR-ROCHE-1159387

PATIENT
  Sex: Male

DRUGS (5)
  1. MABTHERA [Suspect]
     Indication: RHEUMATOID ARTHRITIS
     Route: 042
     Dates: start: 20111129
  2. MABTHERA [Suspect]
     Route: 042
     Dates: start: 20111213
  3. METICORTEN [Concomitant]
  4. PROPRANOLOL [Concomitant]
  5. MYFORTIC [Concomitant]

REACTIONS (1)
  - Platelet count decreased [Unknown]
